FAERS Safety Report 7264221-5 (Version None)
Quarter: 2011Q1

REPORT INFORMATION
  Report Type: 
  Country: None (occurrence: None)
  Receive Date: 20110131
  Receipt Date: 20110118
  Transmission Date: 20110831
  Serious: No
  Sender: FDA-Public Use
  Company Number: US-BIOGENIDEC-2011BI000479

PATIENT
  Age: 66 Year
  Sex: Female

DRUGS (1)
  1. TYSABRI [Suspect]
     Indication: MULTIPLE SCLEROSIS
     Route: 042
     Dates: start: 20100218

REACTIONS (7)
  - VIRAL INFECTION [None]
  - NASOPHARYNGITIS [None]
  - MUSCULOSKELETAL STIFFNESS [None]
  - LOWER RESPIRATORY TRACT INFECTION [None]
  - BACK PAIN [None]
  - MULTIPLE SCLEROSIS RELAPSE [None]
  - PHARYNGITIS [None]
